FAERS Safety Report 6439632-8 (Version None)
Quarter: 2009Q4

REPORT INFORMATION
  Report Type: 
  Country: None (occurrence: None)
  Receive Date: 20091111
  Receipt Date: 20091111
  Transmission Date: 20100525
  Serious: No
  Sender: FDA-Public Use
  Company Number: None

PATIENT
  Age: 3 Year
  Sex: Male
  Weight: 9.9 kg

DRUGS (3)
  1. WARFARIN SODIUM [Suspect]
     Indication: HYPOPLASTIC LEFT HEART SYNDROME
     Dosage: 2 OR 3MG ALTERNATED DAILY DAILY PO
     Route: 048
     Dates: start: 20091023, end: 20091028
  2. WARFARIN SODIUM [Suspect]
     Indication: THROMBOSIS PROPHYLAXIS
     Dosage: 2 OR 3MG ALTERNATED DAILY DAILY PO
     Route: 048
     Dates: start: 20091023, end: 20091028
  3. OSELTAMIVIR LIQUID 15MG/ML [Suspect]
     Indication: INFLUENZA SEROLOGY POSITIVE
     Dosage: 30MG TWICE A DAY PO
     Route: 048

REACTIONS (3)
  - INFLUENZA SEROLOGY POSITIVE [None]
  - INTERNATIONAL NORMALISED RATIO INCREASED [None]
  - MENTAL STATUS CHANGES [None]
